FAERS Safety Report 10351804 (Version 1)
Quarter: 2014Q3

REPORT INFORMATION
  Report Type: Spontaneous
  Country: US (occurrence: US)
  Receive Date: 20140730
  Receipt Date: 20140730
  Transmission Date: 20150326
  Serious: Yes (Other)
  Sender: FDA-Public Use
  Company Number: US-ASTRAZENECA-2014SE53668

PATIENT
  Age: 61 Year
  Sex: Male
  Weight: 122.5 kg

DRUGS (21)
  1. NEXIUM [Suspect]
     Active Substance: ESOMEPRAZOLE MAGNESIUM
     Indication: GASTROOESOPHAGEAL REFLUX DISEASE
     Route: 048
     Dates: start: 2007
  2. CLONAZEPAM. [Concomitant]
     Active Substance: CLONAZEPAM
     Indication: CONVULSION
     Route: 048
  3. FLEXERIL [Concomitant]
     Active Substance: CYCLOBENZAPRINE HYDROCHLORIDE
     Indication: MUSCLE RELAXANT THERAPY
     Route: 048
  4. NEXIUM [Suspect]
     Active Substance: ESOMEPRAZOLE MAGNESIUM
     Indication: HIATUS HERNIA
     Route: 048
     Dates: start: 2007
  5. PERCOCET [Concomitant]
     Active Substance: ACETAMINOPHEN\OXYCODONE HYDROCHLORIDE
     Indication: PAIN
     Dosage: 10-325MG PRN
     Route: 048
  6. NITRO LINGUAL SPRAY UNDER TONGUE [Concomitant]
     Indication: ANGINA PECTORIS
     Dosage: UNKNOWN PRN
     Route: 050
  7. DILTIAZEM [Concomitant]
     Active Substance: DILTIAZEM
     Indication: HYPERTENSION
     Route: 048
  8. HCTZ [Concomitant]
     Active Substance: HYDROCHLOROTHIAZIDE
     Indication: DIURETIC THERAPY
     Route: 048
  9. NEXIUM [Suspect]
     Active Substance: ESOMEPRAZOLE MAGNESIUM
     Indication: OESOPHAGEAL COMPRESSION
     Route: 048
     Dates: start: 2007
  10. LEVAQUIN [Suspect]
     Active Substance: LEVOFLOXACIN
     Route: 042
     Dates: start: 2009
  11. IMITREX INJECTION [Concomitant]
     Indication: PAIN
  12. FLECTOR PATCH ON BACK CALVES NECK SHOULDERS [Concomitant]
     Indication: PAIN
     Dosage: 1.3% PRN
     Route: 061
  13. MS CONTIN [Suspect]
     Active Substance: MORPHINE SULFATE
     Indication: PAIN MANAGEMENT
     Route: 048
  14. LEVAQUIN [Suspect]
     Active Substance: LEVOFLOXACIN
     Route: 048
  15. HYDROCORTISONE LOTION [Concomitant]
     Indication: RASH
     Route: 061
     Dates: start: 201404
  16. ALBUTEROL. [Concomitant]
     Active Substance: ALBUTEROL
     Indication: ASTHMA
     Dosage: 90MCG 2PUFFS DAILY
     Route: 055
     Dates: start: 1969
  17. ALBUTEROL. [Concomitant]
     Active Substance: ALBUTEROL
     Indication: BRONCHITIS
     Dosage: 90MCG 2PUFFS DAILY
     Route: 055
     Dates: start: 1969
  18. CLONAZEPAM. [Concomitant]
     Active Substance: CLONAZEPAM
     Indication: PANIC ATTACK
     Route: 048
  19. MELOXICAM. [Concomitant]
     Active Substance: MELOXICAM
     Indication: JOINT SWELLING
     Route: 048
  20. ASPERCREME NOS [Concomitant]
     Active Substance: MENTHOL\TROLAMINE SALICYLATE
     Indication: PAIN
     Dosage: 10% PRN
     Route: 061
  21. BENADRYL [Concomitant]
     Active Substance: DIPHENHYDRAMINE HYDROCHLORIDE
     Indication: URTICARIA
     Route: 048

REACTIONS (11)
  - Joint range of motion decreased [Unknown]
  - Dysphagia [Unknown]
  - Rash [Unknown]
  - Gait disturbance [Not Recovered/Not Resolved]
  - Tendon pain [Unknown]
  - Weight increased [Unknown]
  - Intentional product misuse [Unknown]
  - Arthritis [Unknown]
  - Abdominal pain upper [Recovered/Resolved]
  - Drug dose omission [Unknown]
  - Tendon rupture [Recovered/Resolved with Sequelae]

NARRATIVE: CASE EVENT DATE: 20140721
